FAERS Safety Report 17325315 (Version 2)
Quarter: 2020Q2

REPORT INFORMATION
  Report Type: Spontaneous
  Country: PT (occurrence: PT)
  Receive Date: 20200127
  Receipt Date: 20200506
  Transmission Date: 20200713
  Serious: Yes (Hospitalization, Other)
  Sender: FDA-Public Use
  Company Number: PT-MYLANLABS-2020M1007797

PATIENT
  Age: 85 Year
  Sex: Female

DRUGS (4)
  1. BISOPROLOL [Suspect]
     Active Substance: BISOPROLOL
     Indication: PRODUCT USED FOR UNKNOWN INDICATION
     Dosage: 2.5 MILLIGRAM
  2. METFORMIN W/VILDAGLIPTIN [Suspect]
     Active Substance: METFORMIN HYDROCHLORIDE\VILDAGLIPTIN
     Indication: PRODUCT USED FOR UNKNOWN INDICATION
     Dosage: VILDAGLIPTIN/METFORMIN 50/1000MG
  3. RAMIPRIL. [Suspect]
     Active Substance: RAMIPRIL
     Indication: PRODUCT USED FOR UNKNOWN INDICATION
     Dosage: 5 MILLIGRAM
  4. AMLODIPINE W/LISINOPRIL [Suspect]
     Active Substance: AMLODIPINE BESYLATE\LISINOPRIL
     Indication: PRODUCT USED FOR UNKNOWN INDICATION
     Dosage: LISINOPRIL/AMLODIPINE 20/5MG
     Route: 065

REACTIONS (9)
  - Hyperkalaemia [Recovered/Resolved]
  - Metabolic acidosis [Not Recovered/Not Resolved]
  - Renal tubular acidosis [Recovering/Resolving]
  - Chronic kidney disease [Unknown]
  - Frustration tolerance decreased [Not Recovered/Not Resolved]
  - Chest pain [Unknown]
  - Troponin I increased [Unknown]
  - Myalgia [Unknown]
  - Bradycardia [Unknown]
